FAERS Safety Report 4267167-X (Version None)
Quarter: 2004Q1

REPORT INFORMATION
  Report Type: 
  Country: None (occurrence: None)
  Receive Date: 20040107
  Receipt Date: 20031211
  Transmission Date: 20041129
  Serious: Yes (Life-Threatening, Hospitalization)
  Sender: FDA-Public Use
  Company Number: A04200300671

PATIENT
  Age: 53 Year
  Sex: Female

DRUGS (5)
  1. ARIXTRA [Suspect]
     Indication: PHLEBOTHROMBOSIS
     Dosage: 2.5 MG ONCE
     Route: 058
     Dates: start: 20031013, end: 20031013
  2. ARIXTRA [Suspect]
     Indication: THROMBOPHLEBITIS
     Dosage: 2.5 MG ONCE
     Route: 058
     Dates: start: 20031013, end: 20031013
  3. BISOPROLOL FUMARATE [Concomitant]
  4. KARVEA 75 (IRBESARTAN) [Concomitant]
  5. ZYRTEC [Concomitant]

REACTIONS (3)
  - ANAPHYLACTIC SHOCK [None]
  - ERYTHEMA [None]
  - TREMOR [None]
